FAERS Safety Report 11246826 (Version 1)
Quarter: 2015Q3

REPORT INFORMATION
  Report Type: Spontaneous
  Country: US (occurrence: None)
  Receive Date: 20150706
  Receipt Date: 20150706
  Transmission Date: 20151125
  Serious: Yes (Other)
  Sender: FDA-Public Use
  Company Number: None

PATIENT
  Age: 41 Year
  Sex: Female
  Weight: 96.62 kg

DRUGS (6)
  1. INSULIN LANTUS AND HUMULIN R [Concomitant]
  2. BLOOD TEST MACHINE [Concomitant]
  3. MULTI VITAMIN, D,C,E [Concomitant]
  4. VITAMIN B12 [Concomitant]
     Active Substance: CYANOCOBALAMIN
  5. HUMULIN R [Suspect]
     Active Substance: INSULIN HUMAN
     Indication: TYPE 1 DIABETES MELLITUS
     Dosage: SLIDING SCALE FOUR TIMES DAILY INTO THE MUSCLE
     Route: 030
  6. CHERRY EXTRACT [Concomitant]
     Active Substance: CHERRY EXTRACT

REACTIONS (2)
  - Product quality issue [None]
  - Drug ineffective [None]

NARRATIVE: CASE EVENT DATE: 20150624
